FAERS Safety Report 4330551-X (Version None)
Quarter: 2004Q2

REPORT INFORMATION
  Report Type: 
  Country: None (occurrence: None)
  Receive Date: 20040402
  Receipt Date: 20040212
  Transmission Date: 20050107
  Serious: Yes (Hospitalization, Other)
  Sender: FDA-Public Use
  Company Number: PHNU2004DE00889

PATIENT
  Age: 57 Year
  Sex: Male

DRUGS (3)
  1. GLEEVEC [Suspect]
     Indication: CHRONIC MYELOID LEUKAEMIA
     Dosage: 400 MG, QD
     Route: 048
     Dates: start: 20030901, end: 20031201
  2. DELIX [Concomitant]
     Dosage: 5 MG, QD
     Route: 048
  3. NEXIUM [Concomitant]
     Route: 048
     Dates: start: 20040201

REACTIONS (14)
  - ANAEMIA [None]
  - ANTI-PLATELET ANTIBODY [None]
  - ANTI-PLATELET ANTIBODY POSITIVE [None]
  - AUTOIMMUNE THROMBOCYTOPENIA [None]
  - BIOPSY BONE MARROW ABNORMAL [None]
  - BONE MARROW DEPRESSION [None]
  - ERYTHROPOIESIS ABNORMAL [None]
  - GRANULOCYTES MATURATION ARREST [None]
  - HAEMATOCRIT DECREASED [None]
  - HAEMOGLOBIN DECREASED [None]
  - HAEMOSIDEROSIS [None]
  - MEGAKARYOCYTES DECREASED [None]
  - RED BLOOD CELL COUNT DECREASED [None]
  - THROMBOCYTOPENIA [None]
